FAERS Safety Report 25504324 (Version 1)
Quarter: 2025Q3

REPORT INFORMATION
  Report Type: Spontaneous
  Country: US (occurrence: US)
  Receive Date: 20250702
  Receipt Date: 20250702
  Transmission Date: 20251021
  Serious: No
  Sender: TAKEDA
  Company Number: US-TAKEDA-2025TUS059948

PATIENT
  Sex: Female

DRUGS (3)
  1. CUVITRU [Suspect]
     Active Substance: HUMAN IMMUNOGLOBULIN G
     Indication: Primary immunodeficiency syndrome
     Dosage: 8 GRAM, 1/WEEK
     Dates: start: 20250623
  2. NEURONTIN [Concomitant]
     Active Substance: GABAPENTIN
     Indication: Tinnitus
  3. NEURONTIN [Concomitant]
     Active Substance: GABAPENTIN
     Indication: Paraesthesia oral

REACTIONS (5)
  - Infusion site mass [Unknown]
  - Pain [Unknown]
  - Back pain [Unknown]
  - Abdominal pain [Unknown]
  - Headache [Unknown]
